FAERS Safety Report 8155237 (Version 2)
Quarter: 2013Q1

REPORT INFORMATION
  Report Type: Spontaneous
  Country: US (occurrence: None)
  Receive Date: 20110914
  Receipt Date: 20121221
  Transmission Date: 20140127
  Serious: Yes (Life-Threatening, Hospitalization)
  Sender: FDA-Public Use
  Company Number: 2011-360

PATIENT
  Age: 42 Year
  Sex: Male

DRUGS (1)
  1. PRIALT [Suspect]
     Indication: COMPLEX REGIONAL PAIN SYNDROME
     Dosage: ONCE/HOUR
     Route: 037
     Dates: start: 20110831, end: 20110831

REACTIONS (4)
  - Circulatory collapse [None]
  - Bradyarrhythmia [None]
  - Confusional state [None]
  - Hypoaesthesia [None]
